FAERS Safety Report 24570280 (Version 1)
Quarter: 2024Q4

REPORT INFORMATION
  Report Type: Spontaneous
  Country: BR (occurrence: BR)
  Receive Date: 20241031
  Receipt Date: 20241031
  Transmission Date: 20250115
  Serious: Yes (Other)
  Sender: ABBVIE
  Company Number: BR-ABBVIE-5984429

PATIENT
  Age: 4 Year
  Sex: Male

DRUGS (6)
  1. DEPAKOTE [Suspect]
     Active Substance: DIVALPROEX SODIUM
     Indication: Product used for unknown indication
     Route: 048
  2. LACOSAMIDE [Suspect]
     Active Substance: LACOSAMIDE
     Indication: Product used for unknown indication
     Route: 065
  3. CANNABIDIOL [Suspect]
     Active Substance: CANNABIDIOL
     Indication: Product used for unknown indication
     Route: 065
  4. SABRIL [Suspect]
     Active Substance: VIGABATRIN
     Indication: Seizure
     Route: 048
     Dates: start: 2021, end: 20230713
  5. CLOBAZAM [Suspect]
     Active Substance: CLOBAZAM
     Indication: Product used for unknown indication
     Route: 048
  6. DIVALPROEX SODIUM [Suspect]
     Active Substance: DIVALPROEX SODIUM
     Indication: Product used for unknown indication
     Route: 065

REACTIONS (28)
  - Epilepsy [Unknown]
  - Epilepsy [Unknown]
  - Choking [Unknown]
  - Muscle spasms [Unknown]
  - Tonic convulsion [Unknown]
  - Drug dependence [Unknown]
  - Somnolence [Unknown]
  - Dyspnoea [Unknown]
  - Lethargy [Unknown]
  - Musculoskeletal disorder [Unknown]
  - Muscular weakness [Unknown]
  - Asthenia [Unknown]
  - Insomnia [Unknown]
  - Dysstasia [Unknown]
  - Hypotonia [Unknown]
  - Product contamination [Unknown]
  - Asthenia [Unknown]
  - Dysphagia [Unknown]
  - Mastication disorder [Unknown]
  - Myoclonus [Unknown]
  - Atonic seizures [Unknown]
  - Abnormal behaviour [Unknown]
  - Motor dysfunction [Unknown]
  - Vulval disorder [Unknown]
  - Inability to crawl [Unknown]
  - Skin lesion [Unknown]
  - Extrapyramidal disorder [Unknown]
  - Muscle tone disorder [Unknown]

NARRATIVE: CASE EVENT DATE: 20221201
